FAERS Safety Report 4766530-8 (Version None)
Quarter: 2005Q3

REPORT INFORMATION
  Report Type: 
  Country: None (occurrence: None)
  Receive Date: 20050912
  Receipt Date: 20050706
  Transmission Date: 20060218
  Serious: Yes (Hospitalization, Other)
  Sender: FDA-Public Use
  Company Number: KE-GILEAD-2005-0008528

PATIENT
  Age: 59 Year
  Sex: Male
  Weight: 54 kg

DRUGS (8)
  1. TRUVADA [Suspect]
     Indication: HIV INFECTION
     Route: 048
     Dates: start: 20050507, end: 20050513
  2. STOCRIN [Concomitant]
     Indication: HIV INFECTION
     Dates: start: 20050507
  3. SEPTRIN [Concomitant]
     Dates: start: 20050507
  4. FLUCONAZOLE [Concomitant]
     Dates: start: 20050507
  5. AUGMENTIN [Concomitant]
     Dates: start: 20050507
  6. LUDIOMIL [Concomitant]
     Dates: start: 20050507
  7. ENALAPRIL [Concomitant]
     Dates: start: 20050505, end: 20050513
  8. AMARYL [Concomitant]
     Dates: start: 20050507

REACTIONS (6)
  - ANGIONEUROTIC OEDEMA [None]
  - BLOOD GLUCOSE INCREASED [None]
  - BLOOD SODIUM DECREASED [None]
  - HYPOGLYCAEMIA [None]
  - RENAL IMPAIRMENT [None]
  - SOMNOLENCE [None]
